FAERS Safety Report 6830582-1 (Version None)
Quarter: 2010Q3

REPORT INFORMATION
  Report Type: 
  Country: None (occurrence: None)
  Receive Date: 20100712
  Receipt Date: 20100629
  Transmission Date: 20110219
  Serious: Yes (Hospitalization)
  Sender: FDA-Public Use
  Company Number: IT-ELI_LILLY_AND_COMPANY-IT201006007746

PATIENT
  Sex: Male

DRUGS (1)
  1. EFFIENT [Suspect]
     Indication: CONGESTIVE CARDIOMYOPATHY
     Dosage: 10 MG, DAILY (1/D)
     Route: 048
     Dates: start: 20100321, end: 20100415

REACTIONS (2)
  - HEPATITIS [None]
  - OFF LABEL USE [None]
